FAERS Safety Report 11568441 (Version 2)
Quarter: 2015Q4

REPORT INFORMATION
  Report Type: Spontaneous
  Country: JP (occurrence: JP)
  Receive Date: 20150929
  Receipt Date: 20151209
  Transmission Date: 20160304
  Serious: Yes (Hospitalization, Other)
  Sender: FDA-Public Use
  Company Number: JP-ASTELLAS-2015JP019314

PATIENT
  Age: 22 Year
  Sex: Male

DRUGS (16)
  1. MAXIPIME [Concomitant]
     Active Substance: CEFEPIME HYDROCHLORIDE
     Indication: PRODUCT USED FOR UNKNOWN INDICATION
     Route: 042
     Dates: start: 20110829, end: 20110909
  2. ELNEOPA NO.2 [Concomitant]
     Active Substance: AMINO ACIDS\CARBOHYDRATES\ELECTROLYTES NOS\VITAMINS
     Indication: MALNUTRITION
     Route: 042
     Dates: start: 20110515, end: 20110901
  3. BIOFERMIN R [Concomitant]
     Active Substance: BACILLUS SUBTILIS\LACTOBACILLUS ACIDOPHILUS\STREPTOCOCCUS FAECAIS
     Indication: ALLOGENIC BONE MARROW TRANSPLANTATION THERAPY
     Route: 048
     Dates: start: 20100826, end: 20120306
  4. ZITHROMAC [Concomitant]
     Active Substance: AZITHROMYCIN DIHYDRATE
     Indication: PHARYNGITIS
     Route: 048
     Dates: start: 20110822, end: 20110824
  5. PROGRAF [Interacting]
     Active Substance: TACROLIMUS\TACROLIMUS ANHYDROUS
     Indication: PROPHYLAXIS AGAINST GRAFT VERSUS HOST DISEASE
     Dosage: 0.4 MG, TWICE DAILY
     Route: 048
     Dates: start: 20110817, end: 20110908
  6. PROGRAF [Interacting]
     Active Substance: TACROLIMUS\TACROLIMUS ANHYDROUS
     Indication: IMMUNOSUPPRESSANT DRUG THERAPY
     Dosage: 0.3 MG, TWICE DAILY
     Route: 048
     Dates: start: 20110909, end: 20110925
  7. DIFLUCAN [Interacting]
     Active Substance: FLUCONAZOLE
     Indication: PROPHYLAXIS
     Route: 048
     Dates: start: 20110509, end: 20110901
  8. MYCOPHENOLATE MOFETIL ACCORD [Concomitant]
     Active Substance: MYCOPHENOLATE MOFETIL
     Indication: PROPHYLAXIS AGAINST GRAFT VERSUS HOST DISEASE
     Dosage: UNK UNK, UNKNOWN FREQ.
     Route: 065
  9. ZOSYN [Concomitant]
     Active Substance: PIPERACILLIN SODIUM\TAZOBACTAM SODIUM
     Indication: PHARYNGITIS
     Route: 042
     Dates: start: 20110824, end: 20110829
  10. CYCLOPHOSPHAMIDE. [Concomitant]
     Active Substance: CYCLOPHOSPHAMIDE
     Indication: PROPHYLAXIS AGAINST GRAFT VERSUS HOST DISEASE
     Route: 065
  11. PROGRAF [Suspect]
     Active Substance: TACROLIMUS\TACROLIMUS ANHYDROUS
     Indication: PROPHYLAXIS AGAINST GRAFT VERSUS HOST DISEASE
     Dosage: UNK UNK, CONTINUOUS
     Route: 065
     Dates: end: 20110816
  12. ZOVIRAX [Concomitant]
     Active Substance: ACYCLOVIR
     Indication: PROPHYLAXIS
     Route: 048
     Dates: start: 20110623, end: 20120828
  13. PROGRAF [Interacting]
     Active Substance: TACROLIMUS\TACROLIMUS ANHYDROUS
     Dosage: 0.4 MG, TWICE DAILY
     Route: 048
     Dates: start: 20110926, end: 20111004
  14. MYCOPHENOLATE MOFETIL ACCORD [Concomitant]
     Active Substance: MYCOPHENOLATE MOFETIL
     Dosage: UNK UNK, UNKNOWN FREQ.
     Route: 065
  15. GASTER [Concomitant]
     Active Substance: FAMOTIDINE
     Indication: ALLOGENIC BONE MARROW TRANSPLANTATION THERAPY
     Route: 048
     Dates: start: 20100826, end: 20120331
  16. SELBEX [Concomitant]
     Active Substance: TEPRENONE
     Indication: ALLOGENIC BONE MARROW TRANSPLANTATION THERAPY
     Route: 048
     Dates: start: 20110509, end: 20120529

REACTIONS (4)
  - Pharyngitis [Recovered/Resolved]
  - Rhabdomyolysis [Recovered/Resolved]
  - Drug interaction [Unknown]
  - Systemic candida [Recovered/Resolved]

NARRATIVE: CASE EVENT DATE: 20110822
